FAERS Safety Report 9654711 (Version 1)
Quarter: 2013Q4

REPORT INFORMATION
  Report Type: Spontaneous
  Country: GB (occurrence: None)
  Receive Date: 20131022
  Receipt Date: 20131022
  Transmission Date: 20140711
  Serious: Yes (Death)
  Sender: FDA-Public Use
  Company Number: 2013038318

PATIENT
  Age: 76 Year
  Sex: Female

DRUGS (6)
  1. RIASTAP [Suspect]
     Indication: HYPOFIBRINOGENAEMIA
     Dosage: 9.4G, 9.4 G RESP. 10 G REPORTED, INTRAVENOUS (NOT OTHERWISE SPECIFIED)
     Route: 042
     Dates: start: 20130923, end: 20130923
  2. RIASTAP [Suspect]
     Indication: HAEMORRHAGE
     Dosage: 9.4G, 9.4 G RESP. 10 G REPORTED, INTRAVENOUS (NOT OTHERWISE SPECIFIED)
     Route: 042
     Dates: start: 20130923, end: 20130923
  3. TRASYLOL [Suspect]
     Indication: HAEMORRHAGE
     Dates: start: 20130923, end: 20130923
  4. PLATELETS, HUAN BLOOD (PLATELETS, HUMAN BLOOD) [Concomitant]
  5. PLASMA, FRESH FROZEN(PLASMA) [Concomitant]
  6. ANAESTHETICS (ANAESTHETICS) [Concomitant]

REACTIONS (8)
  - Graft thrombosis [None]
  - Thrombosis [None]
  - Incorrect dose administered [None]
  - Platelet count decreased [None]
  - Off label use [None]
  - General physical health deterioration [None]
  - Wrong drug administered [None]
  - Medication error [None]
